FAERS Safety Report 24163559 (Version 5)
Quarter: 2025Q2

REPORT INFORMATION
  Report Type: Report from Study
  Country: US (occurrence: US)
  Receive Date: 20240801
  Receipt Date: 20250506
  Transmission Date: 20250717
  Serious: No
  Sender: AMGEN
  Company Number: US-AMGEN-USASP2024149524

PATIENT
  Age: 78 Year
  Sex: Male

DRUGS (3)
  1. KRYSTEXXA [Suspect]
     Active Substance: PEGLOTICASE
     Indication: Gouty tophus
     Dosage: UNK, Q2WK, FIRST INFUSION
     Route: 042
     Dates: start: 20240724
  2. KRYSTEXXA [Suspect]
     Active Substance: PEGLOTICASE
     Dosage: UNK, Q2WK, INFUSION
     Route: 042
     Dates: start: 20240807
  3. KRYSTEXXA [Suspect]
     Active Substance: PEGLOTICASE
     Dosage: UNK UNK, Q2WK, INFUSION
     Route: 042
     Dates: start: 20240821

REACTIONS (6)
  - Foot fracture [Unknown]
  - Pain of skin [Unknown]
  - Oropharyngeal pain [Unknown]
  - Dysphagia [Unknown]
  - Gout [Unknown]
  - Peripheral swelling [Unknown]

NARRATIVE: CASE EVENT DATE: 20240101
